FAERS Safety Report 25799100 (Version 1)
Quarter: 2025Q3

REPORT INFORMATION
  Report Type: Spontaneous
  Country: MX (occurrence: MX)
  Receive Date: 20250913
  Receipt Date: 20250913
  Transmission Date: 20251021
  Serious: Yes (Other)
  Sender: UNITED THERAPEUTICS
  Company Number: MX-UNITED THERAPEUTICS-UNT-2025-031310

PATIENT
  Age: 63 Year
  Weight: 84 kg

DRUGS (3)
  1. REMODULIN [Suspect]
     Active Substance: TREPROSTINIL
     Indication: Pulmonary arterial hypertension
  2. REMODULIN [Suspect]
     Active Substance: TREPROSTINIL
  3. REMODULIN [Suspect]
     Active Substance: TREPROSTINIL

REACTIONS (3)
  - Device loosening [Not Recovered/Not Resolved]
  - Catheter site haemorrhage [Recovered/Resolved]
  - Headache [Not Recovered/Not Resolved]
